FAERS Safety Report 9101944 (Version 1)
Quarter: 2013Q1

REPORT INFORMATION
  Report Type: Spontaneous
  Country: US (occurrence: US)
  Receive Date: 20130218
  Receipt Date: 20130218
  Transmission Date: 20140127
  Serious: Yes (Death)
  Sender: FDA-Public Use
  Company Number: US-COVIDIEN/TYCO HEALTHCARE/MALLINCKRODT-T201300572

PATIENT
  Age: 51 Year
  Sex: Female

DRUGS (6)
  1. HYDROCODONE/ACETAMINOPHEN [Suspect]
     Dosage: UNK
     Route: 048
  2. MORPHINE [Suspect]
  3. OXYCODONE [Suspect]
  4. CARISOPRODOL [Suspect]
  5. DIAZEPAM [Suspect]
  6. PANCRELIPASE [Suspect]

REACTIONS (4)
  - Completed suicide [Fatal]
  - Cardio-respiratory arrest [Fatal]
  - Cardiac arrest [None]
  - Respiratory arrest [None]
